FAERS Safety Report 10955331 (Version 15)
Quarter: 2025Q2

REPORT INFORMATION
  Report Type: Report from Study
  Country: CA (occurrence: CA)
  Receive Date: 20150326
  Receipt Date: 20250423
  Transmission Date: 20250717
  Serious: Yes (Other)
  Sender: ROCHE
  Company Number: CA-ROCHE-1553566

PATIENT
  Age: 27 Year
  Sex: Male
  Weight: 104.0 kg

DRUGS (18)
  1. RITUXAN [Suspect]
     Active Substance: RITUXIMAB
     Indication: Neuromyelitis optica spectrum disorder
     Route: 042
     Dates: end: 20140930
  2. RITUXAN [Suspect]
     Active Substance: RITUXIMAB
     Route: 042
     Dates: start: 20150421, end: 20210213
  3. RITUXAN [Suspect]
     Active Substance: RITUXIMAB
     Route: 042
  4. RITUXAN [Suspect]
     Active Substance: RITUXIMAB
     Route: 042
  5. RITUXAN [Suspect]
     Active Substance: RITUXIMAB
     Route: 042
  6. CELLCEPT [Suspect]
     Active Substance: MYCOPHENOLATE MOFETIL
     Indication: Neuromyelitis optica spectrum disorder
     Route: 065
     Dates: start: 20131001, end: 20140801
  7. RITUXAN HYCELA [Suspect]
     Active Substance: HYALURONIDASE (HUMAN RECOMBINANT)\RITUXIMAB
     Indication: Neuromyelitis optica spectrum disorder
     Route: 065
  8. IMURAN [Suspect]
     Active Substance: AZATHIOPRINE
     Indication: Product used for unknown indication
     Route: 065
  9. PREDNISONE [Concomitant]
     Active Substance: PREDNISONE
  10. CIPRALEX [Concomitant]
     Active Substance: ESCITALOPRAM OXALATE
  11. METHYLPREDNISOLONE [Concomitant]
     Active Substance: METHYLPREDNISOLONE
     Indication: Premedication
     Route: 042
     Dates: start: 20150421, end: 20160726
  12. METHYLPREDNISOLONE [Concomitant]
     Active Substance: METHYLPREDNISOLONE
     Route: 042
  13. CARBAMAZEPINE [Concomitant]
     Active Substance: CARBAMAZEPINE
  14. TIZANIDINE [Concomitant]
     Active Substance: TIZANIDINE
  15. CURCUMIN [Concomitant]
     Active Substance: CURCUMIN
  16. CANNABIS SATIVA SUBSP. INDICA TOP [Concomitant]
     Active Substance: CANNABIS SATIVA SUBSP. INDICA TOP
     Route: 048
  17. DIETARY SUPPLEMENT\HERBALS\MILK THISTLE [Concomitant]
     Active Substance: MILK THISTLE
  18. HERBALS\TURMERIC [Concomitant]
     Active Substance: HERBALS\TURMERIC

REACTIONS (32)
  - Treatment failure [Unknown]
  - Visual impairment [Unknown]
  - Mobility decreased [Unknown]
  - Vertigo [Unknown]
  - Infusion related reaction [Recovered/Resolved]
  - Infusion related reaction [Unknown]
  - Hypertonic bladder [Unknown]
  - Anal incontinence [Unknown]
  - Fatigue [Unknown]
  - Neuromyelitis optica spectrum disorder [Unknown]
  - Lower respiratory tract infection [Not Recovered/Not Resolved]
  - Heart rate decreased [Unknown]
  - Blood pressure fluctuation [Unknown]
  - Ear pruritus [Recovered/Resolved]
  - Flushing [Recovered/Resolved]
  - Chills [Recovered/Resolved]
  - Anxiety [Not Recovered/Not Resolved]
  - Intervertebral disc protrusion [Recovered/Resolved]
  - Ligament sprain [Unknown]
  - Headache [Unknown]
  - Malaise [Unknown]
  - Infusion related reaction [Not Recovered/Not Resolved]
  - Influenza like illness [Unknown]
  - Heart rate decreased [Unknown]
  - Treatment failure [Unknown]
  - Neuromyelitis optica spectrum disorder [Unknown]
  - Nasopharyngitis [Unknown]
  - Cough [Unknown]
  - Blood pressure systolic increased [Unknown]
  - Infection [Unknown]
  - Sinus disorder [Unknown]
  - Off label use [Unknown]

NARRATIVE: CASE EVENT DATE: 20140101
